FAERS Safety Report 5398398-3 (Version None)
Quarter: 2007Q3

REPORT INFORMATION
  Report Type: 
  Country: None (occurrence: None)
  Receive Date: 20070726
  Receipt Date: 20070416
  Transmission Date: 20080115
  Serious: No
  Sender: FDA-Public Use
  Company Number: US-AMGEN-KDL219996

PATIENT
  Age: 44 Year
  Sex: Female

DRUGS (1)
  1. PROCRIT [Suspect]
     Indication: ANAEMIA
     Route: 058
     Dates: start: 20070101

REACTIONS (5)
  - EYE SWELLING [None]
  - INFLUENZA [None]
  - LACRIMATION INCREASED [None]
  - OCULAR ICTERUS [None]
  - TONGUE DISCOLOURATION [None]
